FAERS Safety Report 4621341-9 (Version None)
Quarter: 2005Q1

REPORT INFORMATION
  Report Type: 
  Country: None (occurrence: None)
  Receive Date: 20050324
  Receipt Date: 20050324
  Transmission Date: 20050727
  Serious: Yes (Other)
  Sender: FDA-Public Use
  Company Number: None

PATIENT
  Age: 55 Year
  Sex: Female
  Weight: 61.2356 kg

DRUGS (2)
  1. ACTONEL [Suspect]
     Indication: OSTEOPOROSIS
     Dosage: 1 TABLET ORAL
     Route: 048
     Dates: start: 20030401, end: 20040601
  2. CALCIUM SUPPLEMENTS WITH VIT. D [Concomitant]

REACTIONS (1)
  - BREAST CANCER [None]
